FAERS Safety Report 22184804 (Version 1)
Quarter: 2023Q2

REPORT INFORMATION
  Report Type: Spontaneous
  Country: US (occurrence: US)
  Receive Date: 20230407
  Receipt Date: 20230407
  Transmission Date: 20230722
  Serious: No
  Sender: FDA-Public Use
  Company Number: US-drreddys-LIT/USA/23/0161445

PATIENT
  Age: 31 Year
  Sex: Male

DRUGS (11)
  1. NAPROXEN [Suspect]
     Active Substance: NAPROXEN
     Indication: Pain
     Dosage: HIGH DOSE
  2. NAPROXEN [Suspect]
     Active Substance: NAPROXEN
     Indication: Radiculopathy
  3. HYDROCODONE [Suspect]
     Active Substance: HYDROCODONE
     Indication: Pain
  4. HYDROCODONE [Suspect]
     Active Substance: HYDROCODONE
     Indication: Radiculopathy
  5. ACETAMINOPHEN [Suspect]
     Active Substance: ACETAMINOPHEN
     Indication: Pain
     Dosage: 5-325MG EVERY 6H AS NEEDED
  6. ACETAMINOPHEN [Suspect]
     Active Substance: ACETAMINOPHEN
     Indication: Radiculopathy
  7. CYCLOBENZAPRINE [Suspect]
     Active Substance: CYCLOBENZAPRINE
     Indication: Pain
  8. CYCLOBENZAPRINE [Suspect]
     Active Substance: CYCLOBENZAPRINE
     Indication: Radiculopathy
  9. DIAZEPAM [Suspect]
     Active Substance: DIAZEPAM
     Indication: Pain
  10. DIAZEPAM [Suspect]
     Active Substance: DIAZEPAM
     Indication: Radiculopathy
  11. PREDNISOLONE [Concomitant]
     Active Substance: PREDNISOLONE
     Indication: Product used for unknown indication
     Dosage: TAPERING DOSE UNTIL DISCONTINUATION 5 DAYS LATER

REACTIONS (1)
  - Drug ineffective [Unknown]
